FAERS Safety Report 7707927-3 (Version None)
Quarter: 2011Q3

REPORT INFORMATION
  Report Type: 
  Country: None (occurrence: None)
  Receive Date: 20110824
  Receipt Date: 20110818
  Transmission Date: 20111222
  Serious: Yes (Hospitalization, Other)
  Sender: FDA-Public Use
  Company Number: US-RB-031480-11

PATIENT
  Age: 33 Year
  Sex: Female

DRUGS (2)
  1. KLONOPIN [Suspect]
     Indication: PRODUCT USED FOR UNKNOWN INDICATION
     Dosage: UNKNOWN DOSING DETAILS
     Route: 065
  2. SUBOXONE [Suspect]
     Indication: PRODUCT USED FOR UNKNOWN INDICATION
     Dosage: SUBOXONE SUBLINGUAL FILM. DOSAGE UNKNOWN.
     Route: 065

REACTIONS (7)
  - DISTURBANCE IN ATTENTION [None]
  - FAECAL INCONTINENCE [None]
  - DRUG HYPERSENSITIVITY [None]
  - AMNESIA [None]
  - MENTAL DISORDER [None]
  - HYPERSENSITIVITY [None]
  - URINARY INCONTINENCE [None]
